FAERS Safety Report 24248956 (Version 1)
Quarter: 2024Q3

REPORT INFORMATION
  Report Type: Report from Study
  Country: US (occurrence: US)
  Receive Date: 20240826
  Receipt Date: 20240826
  Transmission Date: 20241017
  Serious: Yes (Hospitalization)
  Sender: VERTEX
  Company Number: US-VERTEX PHARMACEUTICALS-2024-013404

PATIENT
  Age: 0 Year
  Sex: Female

DRUGS (4)
  1. KALYDECO [Suspect]
     Active Substance: IVACAFTOR
     Indication: Cystic fibrosis
     Dosage: 25 MG, BID
     Route: 048
     Dates: start: 20240320
  2. ALBUTEROL [Concomitant]
     Active Substance: ALBUTEROL
     Dosage: 0.083% NEB SOL
  3. NUTRAMIGEN [Concomitant]
     Active Substance: AMINO ACIDS
  4. FAMOTIDINE [Concomitant]
     Active Substance: FAMOTIDINE
     Dosage: SUSPENSION

REACTIONS (2)
  - Rhinovirus infection [Recovered/Resolved]
  - Hepatic enzyme increased [Recovered/Resolved]

NARRATIVE: CASE EVENT DATE: 20240812
